FAERS Safety Report 4949987-9 (Version None)
Quarter: 2006Q1

REPORT INFORMATION
  Report Type: 
  Country: None (occurrence: None)
  Receive Date: 20060315
  Receipt Date: 20060306
  Transmission Date: 20060701
  Serious: Yes (Death)
  Sender: FDA-Public Use
  Company Number: 2006BH005095

PATIENT
  Age: 55 Year
  Sex: Female

DRUGS (1)
  1. SODIUM CHLORIDE 0.9% [Suspect]
     Indication: HAEMODIALYSIS
     Dosage: IV
     Route: 042

REACTIONS (1)
  - AIR EMBOLISM [None]
